FAERS Safety Report 8590415-2 (Version None)
Quarter: 2012Q3

REPORT INFORMATION
  Report Type: 
  Country: None (occurrence: None)
  Receive Date: 20120813
  Receipt Date: 20120802
  Transmission Date: 20120928
  Serious: Yes (Other)
  Sender: FDA-Public Use
  Company Number: US-ASTRAZENECA-2012SE54893

PATIENT
  Age: 65 Year
  Sex: Female
  Weight: 90.7 kg

DRUGS (10)
  1. PRILOSEC [Suspect]
     Indication: GASTROOESOPHAGEAL REFLUX DISEASE
     Route: 048
  2. PRILOSEC [Suspect]
     Route: 048
     Dates: start: 20120601, end: 20120701
  3. NEXIUM [Suspect]
     Route: 048
  4. NEXIUM [Suspect]
     Route: 048
  5. LISINOPRIL [Concomitant]
     Indication: HYPERTENSION
     Route: 048
     Dates: start: 20090101
  6. HYDROCHLOROTHIAZIDE [Concomitant]
     Indication: HYPERTENSION
     Dosage: DAILY
     Route: 048
  7. ATENOLOL [Concomitant]
     Indication: HYPERTENSION
     Dosage: TWO TIMES A DAY
     Route: 048
  8. NEXIUM [Suspect]
     Indication: GASTROOESOPHAGEAL REFLUX DISEASE
     Route: 048
  9. NEXIUM [Suspect]
     Dosage: 40 MG DAILY PLUS AN ADDITIONAL 40 MG DAILY IF NEEDED
     Route: 048
     Dates: end: 20120601
  10. COUMADIN [Concomitant]
     Indication: ATRIAL FIBRILLATION
     Route: 048

REACTIONS (6)
  - HYPERTENSION [None]
  - ATRIAL FIBRILLATION [None]
  - CHEST DISCOMFORT [None]
  - OESOPHAGEAL PAIN [None]
  - SENSATION OF FOREIGN BODY [None]
  - DRUG INEFFECTIVE [None]
